FAERS Safety Report 6073522-8 (Version None)
Quarter: 2009Q1

REPORT INFORMATION
  Report Type: 
  Country: None (occurrence: None)
  Receive Date: 20090211
  Receipt Date: 20090203
  Transmission Date: 20090719
  Serious: Yes (Other)
  Sender: FDA-Public Use
  Company Number: ES-BAYER-200912968GPV

PATIENT
  Age: 75 Year
  Sex: Male
  Weight: 85 kg

DRUGS (7)
  1. NEXAVAR [Suspect]
     Indication: HEPATIC NEOPLASM MALIGNANT
     Route: 048
     Dates: start: 20080925, end: 20081018
  2. METFORMIN HCL [Concomitant]
     Indication: DIABETES MELLITUS
     Route: 065
  3. SPIRIVA [Concomitant]
     Indication: CHRONIC OBSTRUCTIVE PULMONARY DISEASE
     Route: 065
  4. AMERIDE [Concomitant]
     Indication: HYPERTENSION
     Route: 065
  5. INALADUO [Concomitant]
     Indication: CHRONIC OBSTRUCTIVE PULMONARY DISEASE
     Route: 065
  6. ACTONEL [Concomitant]
     Indication: OSTEOPOROSIS
     Route: 065
  7. HEMOVAS [Concomitant]
     Indication: INTERMITTENT CLAUDICATION
     Route: 065

REACTIONS (1)
  - COUGH [None]
